FAERS Safety Report 6180636-0 (Version None)
Quarter: 2009Q2

REPORT INFORMATION
  Report Type: 
  Country: None (occurrence: None)
  Receive Date: 20090506
  Receipt Date: 20090430
  Transmission Date: 20091009
  Serious: Yes (Death, Hospitalization, Other)
  Sender: FDA-Public Use
  Company Number: PHHY2009BR11188

PATIENT
  Age: 83 Year
  Sex: Female

DRUGS (6)
  1. FORASEQ [Suspect]
     Indication: BRONCHITIS
     Dosage: UNK
  2. FORASEQ [Suspect]
     Indication: FATIGUE
  3. SUSTRATE [Concomitant]
     Indication: ARRHYTHMIA
     Route: 048
  4. CONADIM [Concomitant]
     Indication: ARRHYTHMIA
     Route: 048
  5. ANCORON [Concomitant]
     Indication: ARRHYTHMIA
     Route: 048
  6. FUROSEMID [Concomitant]
     Indication: BLOOD PRESSURE
     Dosage: UNK
     Route: 048

REACTIONS (8)
  - BLOOD DISORDER [None]
  - BLOOD UREA INCREASED [None]
  - CONVULSION [None]
  - DYSPNOEA [None]
  - INCREASED UPPER AIRWAY SECRETION [None]
  - INFECTION [None]
  - LUNG DISORDER [None]
  - LUNG NEOPLASM [None]
